FAERS Safety Report 16713094 (Version 1)
Quarter: 2019Q3

REPORT INFORMATION
  Report Type: Report from Study
  Country: NL (occurrence: NL)
  Receive Date: 20190817
  Receipt Date: 20190817
  Transmission Date: 20191004
  Serious: Yes (Life-Threatening, Other)
  Sender: FDA-Public Use
  Company Number: NL-ACCORD-151422

PATIENT

DRUGS (1)
  1. MITOMYCIN. [Suspect]
     Active Substance: MITOMYCIN
     Indication: BREAST CANCER
     Dosage: 12MG IN A 10CC SODIUM CHLORIDE SOLUTION DIVIDED OVER BOTH LIVER LOBES
     Route: 013

REACTIONS (1)
  - Chronic kidney disease [Unknown]
